FAERS Safety Report 9849083 (Version 1)
Quarter: 2013Q4

REPORT INFORMATION
  Report Type: Spontaneous
  Country: US (occurrence: None)
  Receive Date: 20131226
  Receipt Date: 20131226
  Transmission Date: 20140711
  Serious: Yes (Other)
  Sender: FDA-Public Use
  Company Number: PHEH2012US018275

PATIENT
  Age: 13 Year
  Sex: Female

DRUGS (2)
  1. TRILEPTAL [Suspect]
     Route: 048
  2. PATADAY (OLOPATADINE HYDROCHLORIDE) [Concomitant]

REACTIONS (6)
  - Decreased appetite [None]
  - Feeling abnormal [None]
  - Abnormal behaviour [None]
  - Lethargy [None]
  - Drug ineffective [None]
  - Drug level decreased [None]
